FAERS Safety Report 7946404-1 (Version None)
Quarter: 2011Q4

REPORT INFORMATION
  Report Type: 
  Country: None (occurrence: None)
  Receive Date: 20111129
  Receipt Date: 20111114
  Transmission Date: 20120403
  Serious: Yes (Hospitalization, Other)
  Sender: FDA-Public Use
  Company Number: US-JUTA GMBH-2011-19201

PATIENT
  Age: 75 Year
  Sex: Female

DRUGS (2)
  1. AMLODIPINE [Suspect]
     Indication: HYPERTENSION
     Dosage: 10 MG, SINGLE ^HANDFUL^
     Route: 048
  2. VALSARTAN [Suspect]
     Indication: HYPERTENSION
     Dosage: 80 MG, SINGLE ^HANDFUL^
     Route: 048

REACTIONS (6)
  - INTENTIONAL OVERDOSE [None]
  - TACHYCARDIA [None]
  - HYPOKALAEMIA [None]
  - HYPOCALCAEMIA [None]
  - PANCREATITIS [None]
  - HYPOTENSION [None]
